FAERS Safety Report 11619073 (Version 2)
Quarter: 2015Q4

REPORT INFORMATION
  Report Type: Spontaneous
  Country: FI (occurrence: FI)
  Receive Date: 20151012
  Receipt Date: 20151026
  Transmission Date: 20160304
  Serious: Yes (Other)
  Sender: FDA-Public Use
  Company Number: FI-BAYER-2015-435392

PATIENT
  Age: 67 Year
  Sex: Female

DRUGS (1)
  1. NEXAVAR [Suspect]
     Active Substance: SORAFENIB
     Indication: FOLLICULAR THYROID CANCER
     Dosage: 400 MG, BID
     Route: 048
     Dates: start: 20150903, end: 20150914

REACTIONS (18)
  - Pain in extremity [None]
  - Gait disturbance [None]
  - Dry skin [Not Recovered/Not Resolved]
  - Eczema [Not Recovered/Not Resolved]
  - Cyst [Not Recovered/Not Resolved]
  - Asthenia [None]
  - Angular cheilitis [None]
  - Eating disorder [None]
  - Skin exfoliation [Not Recovered/Not Resolved]
  - Pain [None]
  - Palatal disorder [None]
  - Aptyalism [None]
  - Alopecia totalis [None]
  - Chest discomfort [None]
  - Wound [None]
  - Abdominal pain upper [None]
  - Fatigue [None]
  - Rash papular [Not Recovered/Not Resolved]

NARRATIVE: CASE EVENT DATE: 20150914
